FAERS Safety Report 14050138 (Version 2)
Quarter: 2017Q4

REPORT INFORMATION
  Report Type: Spontaneous
  Country: US (occurrence: US)
  Receive Date: 20171005
  Receipt Date: 20171005
  Transmission Date: 20180321
  Serious: Yes (Disabling, Other)
  Sender: FDA-Public Use
  Company Number: US-GE HEALTHCARE LIFE SCIENCES-OSCN-PR-0810S-0575

PATIENT
  Age: 55 Year
  Sex: Male
  Weight: 115.6 kg

DRUGS (35)
  1. AMBIEN [Concomitant]
     Active Substance: ZOLPIDEM TARTRATE
  2. ADVAIR HFA [Concomitant]
     Active Substance: FLUTICASONE PROPIONATE\SALMETEROL XINAFOATE
  3. PREDNISONE. [Concomitant]
     Active Substance: PREDNISONE
  4. FUROSEMIDE. [Concomitant]
     Active Substance: FUROSEMIDE
  5. AMARYL [Concomitant]
     Active Substance: GLIMEPIRIDE
  6. NEURONTIN [Concomitant]
     Active Substance: GABAPENTIN
  7. SINGULAIR [Concomitant]
     Active Substance: MONTELUKAST SODIUM
  8. PREVACID [Concomitant]
     Active Substance: LANSOPRAZOLE
  9. MAGNEVIST [Suspect]
     Active Substance: GADOPENTETATE DIMEGLUMINE
     Indication: PRODUCT USED FOR UNKNOWN INDICATION
     Dosage: 20 ML, SINGLE
     Route: 065
     Dates: start: 20040420, end: 20040420
  10. CELEBREX [Concomitant]
     Active Substance: CELECOXIB
  11. ZETIA [Concomitant]
     Active Substance: EZETIMIBE
  12. AGGRENOX [Concomitant]
     Active Substance: ASPIRIN\DIPYRIDAMOLE
  13. SYNTHROID [Concomitant]
     Active Substance: LEVOTHYROXINE SODIUM
  14. ZOCOR [Concomitant]
     Active Substance: SIMVASTATIN
  15. HYDROCHLOROTHIAZIDE. [Concomitant]
     Active Substance: HYDROCHLOROTHIAZIDE
  16. PROTONIX                           /00661201/ [Concomitant]
     Active Substance: OMEPRAZOLE
  17. LIPITOR [Concomitant]
     Active Substance: ATORVASTATIN CALCIUM
  18. TRAMADOL. [Concomitant]
     Active Substance: TRAMADOL
  19. OMNISCAN [Suspect]
     Active Substance: GADODIAMIDE
     Indication: PRODUCT USED FOR UNKNOWN INDICATION
     Dosage: UNK UNK, SINGLE
     Route: 042
     Dates: start: 20031111, end: 20031111
  20. GADOLINIUM (UNSPECIFIED) [Suspect]
     Active Substance: GADOLINIUM
     Indication: PRODUCT USED FOR UNKNOWN INDICATION
     Dosage: UNK UNK, SINGLE
     Route: 065
     Dates: start: 20031105, end: 20031105
  21. ULTRAVIST [Concomitant]
     Active Substance: IOPROMIDE
  22. TRICOR [Concomitant]
     Active Substance: FENOFIBRATE
  23. BYETTA [Concomitant]
     Active Substance: EXENATIDE
  24. ALPRAZOLAM. [Concomitant]
     Active Substance: ALPRAZOLAM
  25. PROZAC [Concomitant]
     Active Substance: FLUOXETINE HYDROCHLORIDE
  26. CYCLOBENZAPRINE. [Concomitant]
     Active Substance: CYCLOBENZAPRINE
  27. ACETYLSALICYLIC ACID [Concomitant]
     Active Substance: ASPIRIN
     Dosage: 100 MG, UNK
  28. MAGNEVIST [Suspect]
     Active Substance: GADOPENTETATE DIMEGLUMINE
     Dosage: DOSE NOT REPORTED, SINGLE
     Route: 065
     Dates: start: 20060510, end: 20060510
  29. MULTIHANCE [Suspect]
     Active Substance: GADOBENATE DIMEGLUMINE
     Indication: PRODUCT USED FOR UNKNOWN INDICATION
     Dosage: UNK UNK, SINGLE
     Route: 065
     Dates: start: 20070822, end: 20070822
  30. AVANDIA [Concomitant]
     Active Substance: ROSIGLITAZONE MALEATE
  31. DIOVAN [Concomitant]
     Active Substance: VALSARTAN
  32. PLAVIX [Concomitant]
     Active Substance: CLOPIDOGREL BISULFATE
  33. BIAXIN [Concomitant]
     Active Substance: CLARITHROMYCIN
  34. ACTOS [Concomitant]
     Active Substance: PIOGLITAZONE HYDROCHLORIDE
  35. LANTUS [Concomitant]
     Active Substance: INSULIN GLARGINE

REACTIONS (1)
  - Nephrogenic systemic fibrosis [Not Recovered/Not Resolved]

NARRATIVE: CASE EVENT DATE: 20071010
